FAERS Safety Report 11081972 (Version 2)
Quarter: 2015Q4

REPORT INFORMATION
  Report Type: Spontaneous
  Country: ZA (occurrence: ZA)
  Receive Date: 20150501
  Receipt Date: 20151020
  Transmission Date: 20160304
  Serious: Yes (Other)
  Sender: FDA-Public Use
  Company Number: ZA-009507513-1504ZAF024006

PATIENT
  Age: 37 Year
  Sex: Male

DRUGS (1)
  1. ESMERON [Suspect]
     Active Substance: ROCURONIUM BROMIDE
     Indication: INDUCTION OF ANAESTHESIA
     Dosage: UNK
     Dates: start: 201404, end: 201404

REACTIONS (2)
  - Renal cancer [Unknown]
  - Drug hypersensitivity [Unknown]

NARRATIVE: CASE EVENT DATE: 201404
